FAERS Safety Report 7519371-2 (Version None)
Quarter: 2011Q2

REPORT INFORMATION
  Report Type: 
  Country: None (occurrence: None)
  Receive Date: 20110602
  Receipt Date: 20110525
  Transmission Date: 20111010
  Serious: Yes (Other)
  Sender: FDA-Public Use
  Company Number: PHHY2011GB44653

PATIENT
  Age: 64 Year
  Sex: Male
  Weight: 101 kg

DRUGS (14)
  1. PEPPERMINT OIL [Concomitant]
  2. BISOPROLOL FUMARATE [Suspect]
     Indication: MYOCARDIAL ISCHAEMIA
     Dosage: 2.5 MG, QD
     Route: 048
     Dates: start: 20081101, end: 20100801
  3. CLOPIDOGREL [Concomitant]
     Indication: CARDIAC DISORDER
     Dosage: 75 MG, QD
  4. PERINDOPRIL ERBUMINE [Concomitant]
     Dosage: 5 MG, UNK
     Route: 048
  5. ROSUVASTATIN [Concomitant]
     Dosage: 10 MG, QD
  6. ASPIRIN [Concomitant]
     Indication: MYOCARDIAL ISCHAEMIA
     Dosage: 75 MG, QD
     Route: 048
  7. DERMOVATE [Concomitant]
     Indication: PSORIASIS
  8. TRAMADOL HCL [Concomitant]
     Indication: PAIN
     Dosage: 100 MG, UNK
  9. HYDROMOL [Concomitant]
     Indication: PSORIASIS
  10. IBUPROFEN [Concomitant]
     Indication: PAIN
  11. NEBIVOLOL HCL [Concomitant]
     Dosage: 2.5 MG, UNK
  12. ACETAMINOPHEN [Concomitant]
     Indication: PAIN
  13. RAMIPRIL [Suspect]
     Indication: CARDIAC DISORDER
     Dosage: 2.5 MG, QD
  14. MEPERIDINE HCL [Concomitant]

REACTIONS (6)
  - JOINT EFFUSION [None]
  - OSTEOARTHRITIS [None]
  - LIGAMENT INJURY [None]
  - FALL [None]
  - GAIT DISTURBANCE [None]
  - PSORIASIS [None]
